FAERS Safety Report 8878720 (Version 1)
Quarter: 2012Q4

REPORT INFORMATION
  Report Type: 
  Country: US (occurrence: US)
  Receive Date: 20121025
  Receipt Date: 20121025
  Transmission Date: 20130627
  Serious: No
  Sender: FDA-Public Use
  Company Number: US-AMGEN-USASP2012019905

PATIENT
  Age: 59 Year
  Sex: Female
  Weight: 92.52 kg

DRUGS (5)
  1. ENBREL [Suspect]
     Indication: RHEUMATOID ARTHRITIS
     Dosage: 50 mg, qwk
     Route: 058
     Dates: start: 20120103, end: 20120227
  2. GLIMEPIRIDE [Concomitant]
     Dosage: 4 mg, UNK
     Route: 048
  3. DICLOFENAC [Concomitant]
     Dosage: UNK
  4. LEFLUNOMIDE [Concomitant]
     Dosage: 20 mg, UNK
     Route: 048
  5. TRAMADOL [Concomitant]
     Route: 048

REACTIONS (2)
  - Cyst [Recovered/Resolved]
  - Infection [Recovered/Resolved]
